FAERS Safety Report 4562086-3 (Version None)
Quarter: 2005Q1

REPORT INFORMATION
  Report Type: 
  Country: None (occurrence: None)
  Receive Date: 20050121
  Receipt Date: 20050111
  Transmission Date: 20050727
  Serious: Yes (Other)
  Sender: FDA-Public Use
  Company Number: 2005010791

PATIENT
  Sex: Male

DRUGS (2)
  1. AMLODIPINE [Suspect]
     Indication: ILL-DEFINED DISORDER
  2. LIPITOR [Suspect]
     Indication: ILL-DEFINED DISORDER

REACTIONS (1)
  - CEREBROVASCULAR ACCIDENT [None]
